FAERS Safety Report 4937319-1 (Version None)
Quarter: 2006Q1

REPORT INFORMATION
  Report Type: 
  Country: None (occurrence: None)
  Receive Date: 20060309
  Receipt Date: 20060228
  Transmission Date: 20060701
  Serious: Yes (Other)
  Sender: FDA-Public Use
  Company Number: US-KINGPHARMUSA00001-K200600282

PATIENT

DRUGS (3)
  1. SONATA [Suspect]
     Dosage: 60 TO 100 MG 2 OR 3 TIMES/MONTH
     Route: 045
     Dates: start: 20050201
  2. BENZODIAZEPINES [Concomitant]
     Dosage: UNK, UNK
  3. ALCOHOL [Concomitant]

REACTIONS (1)
  - DRUG ABUSER [None]
